FAERS Safety Report 24151140 (Version 1)
Quarter: 2024Q3

REPORT INFORMATION
  Report Type: Spontaneous
  Country: UG (occurrence: UG)
  Receive Date: 20240730
  Receipt Date: 20240730
  Transmission Date: 20241016
  Serious: Yes (Other)
  Sender: RANBAXY
  Company Number: UG-SUN PHARMACEUTICAL INDUSTRIES LTD-2024RR-459486

PATIENT
  Age: 19 Year
  Sex: Female

DRUGS (4)
  1. ACYCLOVIR [Suspect]
     Active Substance: ACYCLOVIR
     Indication: Anogenital warts
     Dosage: 400 MILLIGRAM, TID
     Route: 048
  2. EFAVIRENZ [Suspect]
     Active Substance: EFAVIRENZ
     Indication: HIV infection
     Dosage: UNK
     Route: 065
  3. LAMIVUDINE\TENOFOVIR [Suspect]
     Active Substance: LAMIVUDINE\TENOFOVIR
     Indication: HIV infection
     Dosage: UNK
     Route: 065
  4. QUININE [Suspect]
     Active Substance: QUININE
     Indication: Malaria
     Dosage: UNK
     Route: 065

REACTIONS (3)
  - Exposure during pregnancy [Unknown]
  - Anaemia [Recovered/Resolved]
  - Drug ineffective [Unknown]
